FAERS Safety Report 19312897 (Version 1)
Quarter: 2021Q2

REPORT INFORMATION
  Report Type: Spontaneous
  Country: US (occurrence: US)
  Receive Date: 20210526
  Receipt Date: 20210526
  Transmission Date: 20210717
  Serious: Yes (Life-Threatening, Hospitalization, Other)
  Sender: FDA-Public Use
  Company Number: None

PATIENT
  Age: 62 Year
  Sex: Female
  Weight: 42.75 kg

DRUGS (13)
  1. HYDROXYZINE [Concomitant]
     Active Substance: HYDROXYZINE HYDROCHLORIDE
  2. VITAMIN C [Concomitant]
     Active Substance: ASCORBIC ACID
  3. WALKER [Concomitant]
  4. AVAPS MACHINE [Concomitant]
  5. DILAUDID [Suspect]
     Active Substance: HYDROMORPHONE HYDROCHLORIDE
     Indication: PROCEDURAL PAIN
     Dosage: ?          OTHER ROUTE:IV?
     Route: 042
     Dates: start: 20201101, end: 20201102
  6. METOPROLOL SUCCINATE. [Concomitant]
     Active Substance: METOPROLOL SUCCINATE
  7. CALCIUM [Concomitant]
     Active Substance: CALCIUM
  8. VALTREX [Concomitant]
     Active Substance: VALACYCLOVIR HYDROCHLORIDE
  9. FLONASE [Concomitant]
     Active Substance: FLUTICASONE PROPIONATE
  10. MANUAL WHEELCHAIR [Concomitant]
  11. VALIUM [Concomitant]
     Active Substance: DIAZEPAM
  12. VITAMIN D [Concomitant]
     Active Substance: VITAMIN D NOS
  13. POWER WHEELCHAIR [Concomitant]

REACTIONS (1)
  - Accidental overdose [None]

NARRATIVE: CASE EVENT DATE: 20201101
